FAERS Safety Report 4657729-X (Version None)
Quarter: 2005Q2

REPORT INFORMATION
  Report Type: 
  Country: None (occurrence: None)
  Receive Date: 20050510
  Receipt Date: 20050429
  Transmission Date: 20051028
  Serious: Yes (Life-Threatening, Hospitalization)
  Sender: FDA-Public Use
  Company Number: DE-ABBOTT-05P-062-0299495-00

PATIENT
  Sex: Female
  Weight: 75.6 kg

DRUGS (2)
  1. KLACID [Suspect]
     Indication: UPPER RESPIRATORY TRACT INFECTION
     Route: 048
     Dates: end: 20050421
  2. MOXIFLOXACIN HYDROCHLORIDE [Concomitant]
     Indication: UPPER RESPIRATORY TRACT INFECTION
     Route: 048
     Dates: start: 20050421

REACTIONS (3)
  - ANGIONEUROTIC OEDEMA [None]
  - DYSPNOEA EXACERBATED [None]
  - EPIGLOTTITIS [None]
